FAERS Safety Report 5715642-0 (Version None)
Quarter: 2008Q2

REPORT INFORMATION
  Report Type: 
  Country: None (occurrence: None)
  Receive Date: 20080424
  Receipt Date: 20080324
  Transmission Date: 20081010
  Serious: No
  Sender: FDA-Public Use
  Company Number: US-BAYER-US-2007-024201

PATIENT
  Age: 30 Year
  Sex: Female
  Weight: 118 kg

DRUGS (1)
  1. MIRENA [Suspect]
     Indication: CONTRACEPTION
     Route: 015
     Dates: start: 20070516

REACTIONS (4)
  - AMENORRHOEA [None]
  - METRORRHAGIA [None]
  - NAUSEA [None]
  - WEIGHT INCREASED [None]
